FAERS Safety Report 9616998 (Version 6)
Quarter: 2014Q1

REPORT INFORMATION
  Report Type: Report from Study
  Country: US (occurrence: US)
  Receive Date: 20131011
  Receipt Date: 20140220
  Transmission Date: 20141002
  Serious: Yes (Hospitalization)
  Sender: FDA-Public Use
  Company Number: US-ACTELION-A-US2013-89519

PATIENT
  Age: 46 Year
  Sex: Male

DRUGS (4)
  1. TRACLEER [Suspect]
     Indication: PULMONARY ARTERIAL HYPERTENSION
     Dosage: UNK
     Route: 048
     Dates: start: 20101221
  2. SILDENAFIL [Concomitant]
  3. COUMADIN [Concomitant]
  4. TYVASO [Concomitant]
     Dosage: UNK
     Dates: end: 20140122

REACTIONS (8)
  - Dehydration [Unknown]
  - Blood potassium decreased [Unknown]
  - Cardiac failure congestive [Unknown]
  - Palpitations [Unknown]
  - Pulmonary arterial pressure increased [Unknown]
  - Syncope [Recovering/Resolving]
  - Cardiac output decreased [Recovering/Resolving]
  - Disease progression [Recovering/Resolving]
